FAERS Safety Report 22215137 (Version 1)
Quarter: 2023Q2

REPORT INFORMATION
  Report Type: Spontaneous
  Country: US (occurrence: US)
  Receive Date: 20230415
  Receipt Date: 20230415
  Transmission Date: 20230722
  Serious: No
  Sender: FDA-Public Use
  Company Number: US-JNJFOC-20191120570

PATIENT
  Age: 48 Year
  Sex: Male
  Weight: 180 kg

DRUGS (1)
  1. IMODIUM MULTI-SYMPTOM RELIEF [Suspect]
     Active Substance: DIMETHICONE\LOPERAMIDE HYDROCHLORIDE
     Indication: Diarrhoea
     Dosage: 8 CAPLETS WITHIN 24 HOURS YESTERDAY  I TOOK 2 CAPLETS, THIS MORNING 3AM I TOOK 2 CAPLETS,  5AM I TOO
     Route: 048
     Dates: start: 20191112, end: 20191113

REACTIONS (2)
  - Inappropriate schedule of product administration [Unknown]
  - Off label use [Unknown]
